FAERS Safety Report 22193941 (Version 2)
Quarter: 2023Q2

REPORT INFORMATION
  Report Type: Spontaneous
  Country: JP (occurrence: JP)
  Receive Date: 20230410
  Receipt Date: 20230412
  Transmission Date: 20230721
  Serious: Yes (Other)
  Sender: FDA-Public Use
  Company Number: JP-002147023-NVSJ2023JP005694

PATIENT
  Age: 66 Year
  Sex: Female

DRUGS (1)
  1. GLYCOPYRROLATE\INDACATEROL\MOMETASONE FUROATE [Suspect]
     Active Substance: GLYCOPYRROLATE\INDACATEROL\MOMETASONE FUROATE
     Indication: Asthma
     Dosage: 1DF: INDACATEROL ACETATE173UG,GLYCOPYRRONIUM BROMIDE63UG,MOMETASONE FUROATE 160UG, UNKNOWN

REACTIONS (1)
  - Glaucoma [Unknown]
